FAERS Safety Report 5117406-8 (Version None)
Quarter: 2006Q3

REPORT INFORMATION
  Report Type: 
  Country: None (occurrence: None)
  Receive Date: 20060929
  Receipt Date: 20060919
  Transmission Date: 20061208
  Serious: Yes (Other)
  Sender: FDA-Public Use
  Company Number: FR-JNJFOC-20060905398

PATIENT
  Sex: Male

DRUGS (1)
  1. EPITOMAX [Suspect]
     Indication: EPILEPSY
     Route: 048

REACTIONS (1)
  - CATARACT [None]
